FAERS Safety Report 14599217 (Version 4)
Quarter: 2018Q3

REPORT INFORMATION
  Report Type: Spontaneous
  Country: DK (occurrence: DK)
  Receive Date: 20180305
  Receipt Date: 20180828
  Transmission Date: 20181010
  Serious: Yes (Other)
  Sender: FDA-Public Use
  Company Number: DK-JNJFOC-20180238445

PATIENT
  Age: 63 Year
  Sex: Female

DRUGS (8)
  1. VAGIFEM [Concomitant]
     Active Substance: ESTRADIOL
     Route: 067
     Dates: start: 20131210
  2. ZINC OXIDE. [Concomitant]
     Active Substance: ZINC OXIDE
     Indication: ZINC DEFICIENCY
     Route: 048
     Dates: start: 20140708
  3. UNIKALK BASIC [Concomitant]
     Indication: CROHN^S DISEASE
     Route: 048
     Dates: start: 20110906
  4. HUMIRA [Suspect]
     Active Substance: ADALIMUMAB
     Indication: CROHN^S DISEASE
     Route: 058
     Dates: start: 201411, end: 20171221
  5. VIBEDEN [Concomitant]
     Indication: VITAMIN B12 DEFICIENCY
     Route: 030
     Dates: start: 20140708
  6. MERCAPTOPURINE. [Concomitant]
     Active Substance: MERCAPTOPURINE
     Route: 065
  7. PYRIDOXIN HYDROCHLORIDE [Concomitant]
     Route: 048
     Dates: start: 20140708
  8. REMICADE [Suspect]
     Active Substance: INFLIXIMAB
     Indication: CROHN^S DISEASE
     Route: 042
     Dates: start: 201408, end: 201411

REACTIONS (11)
  - Metastatic squamous cell carcinoma [Unknown]
  - Tonsil cancer [Unknown]
  - Lymphadenopathy [Unknown]
  - Mouth ulceration [Unknown]
  - Metastases to lymph nodes [Unknown]
  - Facial asymmetry [Unknown]
  - Ear pain [Unknown]
  - Ear pain [Unknown]
  - Throat tightness [Unknown]
  - Oropharyngeal pain [Unknown]
  - Pharyngeal oedema [Unknown]

NARRATIVE: CASE EVENT DATE: 20171001
